FAERS Safety Report 7051635-1 (Version None)
Quarter: 2010Q4

REPORT INFORMATION
  Report Type: 
  Country: None (occurrence: None)
  Receive Date: 20101018
  Receipt Date: 20101018
  Transmission Date: 20110411
  Serious: Yes (Other)
  Sender: FDA-Public Use
  Company Number: None

PATIENT
  Age: 36 Year
  Sex: Male
  Weight: 108.8633 kg

DRUGS (2)
  1. OXYCONTIN [Suspect]
     Indication: PAIN
  2. OXYCONTIN [Suspect]

REACTIONS (5)
  - ABDOMINAL DISCOMFORT [None]
  - DIARRHOEA [None]
  - HEADACHE [None]
  - INADEQUATE ANALGESIA [None]
  - PRODUCT FORMULATION ISSUE [None]
